FAERS Safety Report 5084850-7 (Version None)
Quarter: 2006Q3

REPORT INFORMATION
  Report Type: 
  Country: None (occurrence: None)
  Receive Date: 20060815
  Receipt Date: 20060801
  Transmission Date: 20061208
  Serious: Yes (Death)
  Sender: FDA-Public Use
  Company Number: 2006RR-03174

PATIENT
  Age: 51 Year
  Sex: Male
  Weight: 100 kg

DRUGS (1)
  1. METFORMIN HCL [Suspect]
     Indication: DIABETES MELLITUS NON-INSULIN-DEPENDENT
     Dosage: ORAL
     Route: 048

REACTIONS (4)
  - CARDIAC ARREST [None]
  - CARDIOGENIC SHOCK [None]
  - LACTIC ACIDOSIS [None]
  - RENAL FAILURE ACUTE [None]
